FAERS Safety Report 18579596 (Version 2)
Quarter: 2020Q4

REPORT INFORMATION
  Report Type: Spontaneous
  Country: US (occurrence: US)
  Receive Date: 20201204
  Receipt Date: 20201207
  Transmission Date: 20210114
  Serious: Yes (Other)
  Sender: FDA-Public Use
  Company Number: US-PFIZER INC-2020474480

PATIENT
  Age: 65 Year
  Sex: Female
  Weight: 81.65 kg

DRUGS (2)
  1. ELETRIPTAN HBR [Suspect]
     Active Substance: ELETRIPTAN HYDROBROMIDE
     Indication: MIGRAINE
     Dosage: 40 MG
  2. LEVOXYL [Concomitant]
     Active Substance: LEVOTHYROXINE SODIUM
     Dosage: 112 UG

REACTIONS (6)
  - Enuresis [Unknown]
  - Memory impairment [Unknown]
  - Weight increased [Unknown]
  - Fall [Unknown]
  - Brain injury [Unknown]
  - Headache [Unknown]
